FAERS Safety Report 8683166 (Version 3)
Quarter: 2012Q4

REPORT INFORMATION
  Report Type: 
  Country: US (occurrence: US)
  Receive Date: 20120726
  Receipt Date: 20120919
  Transmission Date: 20130627
  Serious: Yes (Hospitalization, Other)
  Sender: FDA-Public Use
  Company Number: US-BIOGENIDEC-2012BI026531

PATIENT
  Sex: Female

DRUGS (17)
  1. TYSABRI [Suspect]
     Indication: MULTIPLE SCLEROSIS
     Route: 042
     Dates: start: 20090301, end: 20120425
  2. HYDROCORTISONE [Concomitant]
     Indication: ADDISON^S DISEASE
  3. AMILORIDE [Concomitant]
  4. BACLOFEN [Concomitant]
  5. CLARITIN [Concomitant]
  6. COLACE [Concomitant]
  7. CYMBALTA [Concomitant]
  8. CYTOMEL [Concomitant]
  9. VITAMIN D [Concomitant]
  10. ESTRADIOL [Concomitant]
  11. POTASSIUM [Concomitant]
  12. PROVIGIL [Concomitant]
  13. REQUIP [Concomitant]
  14. SYNTHROID [Concomitant]
  15. TOPAMAX [Concomitant]
  16. TRAZODONE [Concomitant]
  17. ZANTAC [Concomitant]

REACTIONS (7)
  - Fall [Recovered/Resolved]
  - Adrenocortical insufficiency acute [Recovered/Resolved]
  - Skin lesion [Unknown]
  - Oedema peripheral [Not Recovered/Not Resolved]
  - Eye injury [Recovered/Resolved]
  - Cellulitis [Unknown]
  - Adrenal insufficiency [Unknown]
